FAERS Safety Report 8823309 (Version 1)
Quarter: 2012Q4

REPORT INFORMATION
  Report Type: 
  Country: IT (occurrence: IT)
  Receive Date: 20121003
  Receipt Date: 20121003
  Transmission Date: 20130627
  Serious: Yes (Hospitalization)
  Sender: FDA-Public Use
  Company Number: IT-ROCHE-1136240

PATIENT
  Age: 79 Year
  Sex: Female
  Weight: 69 kg

DRUGS (2)
  1. IBUPROFEN [Suspect]
     Indication: SCIATICA
     Route: 048
     Dates: start: 20120605, end: 20120625
  2. CEFTRIAXONE [Suspect]
     Indication: URINARY TRACT INFECTION
     Route: 030
     Dates: start: 20120630, end: 20120706

REACTIONS (5)
  - Hepatitis acute [Recovering/Resolving]
  - Jaundice [Recovering/Resolving]
  - Nausea [Recovering/Resolving]
  - Vomiting [Recovering/Resolving]
  - Decreased appetite [Recovering/Resolving]
